FAERS Safety Report 5167187-7 (Version None)
Quarter: 2006Q4

REPORT INFORMATION
  Report Type: 
  Country: None (occurrence: None)
  Receive Date: 20061130
  Receipt Date: 20061123
  Transmission Date: 20070319
  Serious: Yes (Death)
  Sender: FDA-Public Use
  Company Number: 6027609

PATIENT
  Sex: Male

DRUGS (4)
  1. LEVOTHYROXINE SODIUM [Suspect]
     Indication: DRUG EXPOSURE DURING PREGNANCY
     Dosage: 75 MCG (75 MCG,1 IN 1 D)
     Route: 064
     Dates: start: 20051007, end: 20060203
  2. TRIZIVIR [Suspect]
     Indication: DRUG EXPOSURE DURING PREGNANCY
     Dosage: 2 DOSAGE FORMS (1 DOSAGE FORMS,2 IN 1 D)
     Route: 064
     Dates: start: 20030715, end: 20060203
  3. ORELOX (100 MG, TABLET) (CEFRODOXIME PROXETIL) [Suspect]
     Indication: DRUG EXPOSURE DURING PREGNANCY
     Route: 064
     Dates: start: 20060101
  4. OTIPAX (EAR DROPS, SOLUTION) (PHENAZONE, LIDOCAINE HYDROCHLORIDE) [Suspect]
     Indication: DRUG EXPOSURE DURING PREGNANCY
     Route: 064
     Dates: start: 20060101

REACTIONS (5)
  - DRUG EXPOSURE DURING PREGNANCY [None]
  - EAR PAIN [None]
  - INTRA-UTERINE DEATH [None]
  - MITOCHONDRIAL TOXICITY [None]
  - PNEUMONIA MYCOPLASMAL [None]
